FAERS Safety Report 4278911-X (Version None)
Quarter: 2004Q1

REPORT INFORMATION
  Report Type: 
  Country: None (occurrence: None)
  Receive Date: 20040126
  Receipt Date: 20031212
  Transmission Date: 20041129
  Serious: Yes (Other)
  Sender: FDA-Public Use
  Company Number: PHNU2003DE04380

PATIENT
  Age: 72 Year
  Sex: Male
  Weight: 80 kg

DRUGS (4)
  1. SANDIMMUNE [Suspect]
     Indication: APLASTIC ANAEMIA
     Dosage: 160MG/DAY
     Route: 048
     Dates: start: 19991201
  2. LORZAAR [Concomitant]
     Indication: HYPERCHOLESTEROLAEMIA
     Dosage: 100MG/DAY
     Route: 048
  3. CORDAREX [Concomitant]
     Indication: ARRHYTHMIA
     Dosage: 5DF/WEEK
     Dates: start: 20001201
  4. ACETYLSALICYLIC ACID SRT [Concomitant]
     Indication: CORONARY ARTERY DISEASE
     Dosage: 100 MG, QD
     Dates: start: 20001201

REACTIONS (2)
  - PAPILLOEDEMA [None]
  - VISUAL ACUITY REDUCED [None]
